FAERS Safety Report 9401591 (Version 1)
Quarter: 2013Q3

REPORT INFORMATION
  Report Type: Report from Study
  Country: US (occurrence: US)
  Receive Date: 20130716
  Receipt Date: 20130716
  Transmission Date: 20140515
  Serious: Yes (Hospitalization)
  Sender: FDA-Public Use
  Company Number: US-ROCHE-1248069

PATIENT
  Sex: Female
  Weight: 93.07 kg

DRUGS (12)
  1. XOLAIR [Suspect]
     Indication: ASTHMA
     Route: 058
     Dates: start: 20130606, end: 20130620
  2. VENTOLIN [Concomitant]
     Indication: ASTHMA
     Dosage: 2 PUFFS EVERY 4 TO 6 HOURS
     Route: 050
     Dates: start: 2010
  3. ADVAIR [Concomitant]
     Indication: ASTHMA
     Dosage: DOSE: 500/50 MG
     Route: 048
  4. SINGULAIR [Concomitant]
     Indication: HYPERSENSITIVITY
     Route: 048
     Dates: start: 201305
  5. SINGULAIR [Concomitant]
     Indication: ASTHMA
  6. FLONASE [Concomitant]
     Indication: HYPERSENSITIVITY
     Route: 045
     Dates: start: 201306
  7. BENAZEPRIL [Concomitant]
     Indication: BLOOD PRESSURE
  8. CYMBALTA [Concomitant]
     Indication: FIBROMYALGIA
  9. CYMBALTA [Concomitant]
     Indication: ARTHRITIS
  10. BACLOFEN [Concomitant]
     Indication: FIBROMYALGIA
  11. TRAMADOL [Concomitant]
     Indication: FIBROMYALGIA
     Dosage: ALLERGY SHOT AND ALLERGY PILL ONCE A WEEK.
     Route: 065
  12. WARFARIN [Concomitant]
     Indication: ANTICOAGULANT THERAPY

REACTIONS (2)
  - Pulmonary embolism [Unknown]
  - Pulmonary thrombosis [Unknown]
